FAERS Safety Report 5974761-4 (Version None)
Quarter: 2008Q4

REPORT INFORMATION
  Report Type: 
  Country: None (occurrence: None)
  Receive Date: 20081201
  Receipt Date: 20081125
  Transmission Date: 20090506
  Serious: Yes (Other)
  Sender: FDA-Public Use
  Company Number: US-PFIZER INC-2008100543

PATIENT
  Sex: Female
  Weight: 90.9 kg

DRUGS (11)
  1. CHANTIX [Suspect]
     Indication: SMOKING CESSATION THERAPY
     Route: 048
     Dates: start: 20081001
  2. WELLBUTRIN [Concomitant]
  3. CLONAZEPAM [Concomitant]
  4. AMITRIPTYLINE HCL [Concomitant]
  5. DICLOFENAC SODIUM [Concomitant]
  6. RANITIDINE [Concomitant]
  7. CYCLOBENZAPRINE HCL [Concomitant]
  8. VENLAFAXINE HCL [Concomitant]
  9. LANSOPRAZOLE [Concomitant]
  10. MULTI-VITAMINS [Concomitant]
  11. SIMETHICONE [Concomitant]

REACTIONS (1)
  - VIOLENCE-RELATED SYMPTOM [None]
